FAERS Safety Report 5034423-7 (Version None)
Quarter: 2006Q2

REPORT INFORMATION
  Report Type: 
  Country: None (occurrence: None)
  Receive Date: 20060620
  Receipt Date: 20060602
  Transmission Date: 20061013
  Serious: Yes (Death, Other)
  Sender: FDA-Public Use
  Company Number: DE200606000536

PATIENT
  Sex: Male

DRUGS (2)
  1. GEMCITABINE HYDROCHLORIDE (GEMCITABINE HYDROCHLORIDE UNKNOWN FORMULATI [Suspect]
     Indication: NON-SMALL CELL LUNG CANCER
     Dosage: 1200 MG/M2, OTHER, INTRAVENOUS
     Route: 042
  2. VINORELBINE TARTRATE [Concomitant]

REACTIONS (5)
  - ARRHYTHMIA [None]
  - CARDIOPULMONARY FAILURE [None]
  - CYTOMEGALOVIRUS INFECTION [None]
  - HYPERTHYROIDISM [None]
  - PNEUMONIA PRIMARY ATYPICAL [None]
